FAERS Safety Report 4828384-0 (Version None)
Quarter: 2005Q4

REPORT INFORMATION
  Report Type: 
  Country: None (occurrence: None)
  Receive Date: 20051115
  Receipt Date: 20050803
  Transmission Date: 20060501
  Serious: Yes (Hospitalization, Other)
  Sender: FDA-Public Use
  Company Number: US-MERCK-0508USA01278

PATIENT
  Age: 65 Year
  Sex: Female
  Weight: 66 kg

DRUGS (20)
  1. TOPROL-XL [Concomitant]
     Indication: HYPERTENSION
     Route: 065
     Dates: start: 19960101, end: 20030401
  2. ISOSORBIDE [Concomitant]
     Indication: ANGINA PECTORIS
     Route: 065
  3. DYAZIDE [Concomitant]
     Indication: POLYURIA
     Route: 065
  4. NORVASC [Concomitant]
     Indication: HYPERTENSION
     Route: 065
     Dates: start: 20000101, end: 20030101
  5. KLONOPIN [Concomitant]
     Indication: DEPRESSION
     Route: 065
     Dates: start: 20000101
  6. ZOCOR [Concomitant]
     Indication: HYPERCHOLESTEROLAEMIA
     Route: 065
     Dates: start: 19950101, end: 20020101
  7. LIPITOR [Concomitant]
     Indication: HYPERCHOLESTEROLAEMIA
     Route: 065
     Dates: start: 20000101, end: 20031001
  8. NITROGLYCERIN [Concomitant]
     Indication: ANGINA PECTORIS
     Route: 065
  9. WELLBUTRIN [Concomitant]
     Indication: EX-SMOKER
     Route: 065
     Dates: start: 20000401, end: 20000501
  10. PLAVIX [Concomitant]
     Indication: ANTIPLATELET THERAPY
     Route: 065
     Dates: start: 20000101
  11. CATAPRES [Concomitant]
     Indication: HYPERTENSION
     Route: 065
     Dates: start: 20000101, end: 20000101
  12. AMITRIPTYLINE HYDROCHLORIDE [Concomitant]
     Route: 065
  13. VIOXX [Suspect]
     Indication: ARTHRITIS
     Route: 048
     Dates: start: 20000128, end: 20011220
  14. VIOXX [Suspect]
     Indication: OSTEOARTHRITIS
     Route: 048
     Dates: start: 20000128, end: 20011220
  15. ASPIRIN [Concomitant]
     Indication: PAIN
     Route: 065
     Dates: start: 20000101
  16. LOPID [Concomitant]
     Indication: HYPERCHOLESTEROLAEMIA
     Route: 065
     Dates: start: 20000301, end: 20011201
  17. K-DUR 10 [Concomitant]
     Route: 065
  18. TYLENOL (CAPLET) [Concomitant]
     Route: 065
  19. FUROSEMIDE [Concomitant]
     Indication: POLYURIA
     Route: 065
     Dates: start: 20000101, end: 20020101
  20. TYLENOL W/ CODEINE NO. 3 [Concomitant]
     Route: 065
     Dates: start: 19960101, end: 20030401

REACTIONS (7)
  - ACUTE MYOCARDIAL INFARCTION [None]
  - ANGINA PECTORIS [None]
  - ANXIETY [None]
  - CARDIAC DISORDER [None]
  - DEPRESSION [None]
  - MYOCARDIAL INFARCTION [None]
  - WRONG TECHNIQUE IN DRUG USAGE PROCESS [None]
